FAERS Safety Report 25660147 (Version 1)
Quarter: 2025Q3

REPORT INFORMATION
  Report Type: Spontaneous
  Country: US (occurrence: US)
  Receive Date: 20250808
  Receipt Date: 20250808
  Transmission Date: 20251020
  Serious: Yes (Hospitalization)
  Sender: CHIESI
  Company Number: US-CHIESI-2025CHF05481

PATIENT
  Age: 8 Year
  Sex: Female
  Weight: 30 kg

DRUGS (4)
  1. FERRIPROX [Suspect]
     Active Substance: DEFERIPRONE
     Indication: Transfusion related complication
     Dosage: 1500 MILLIGRAM, BID
     Route: 065
     Dates: start: 20241016, end: 202501
  2. FERRIPROX [Suspect]
     Active Substance: DEFERIPRONE
     Indication: Infusion related reaction
  3. FERRIPROX [Suspect]
     Active Substance: DEFERIPRONE
     Indication: Injection related reaction
  4. FERRIPROX [Suspect]
     Active Substance: DEFERIPRONE
     Indication: Off label use

REACTIONS (4)
  - Ill-defined disorder [Unknown]
  - Prescribed overdose [Unknown]
  - Off label use [Unknown]
  - Off label use [Unknown]

NARRATIVE: CASE EVENT DATE: 20241016
